FAERS Safety Report 7486129-2 (Version None)
Quarter: 2011Q2

REPORT INFORMATION
  Report Type: 
  Country: None (occurrence: None)
  Receive Date: 20110517
  Receipt Date: 20110513
  Transmission Date: 20111010
  Serious: Yes (Hospitalization)
  Sender: FDA-Public Use
  Company Number: CH-EISAI INC-E2020-09152-SPO-CH

PATIENT
  Sex: Female
  Weight: 52.5 kg

DRUGS (16)
  1. ARICEPT [Suspect]
     Route: 048
     Dates: start: 20101207, end: 20101222
  2. REMERON [Suspect]
     Route: 048
     Dates: start: 20101129, end: 20101212
  3. FORMOTEROL FUMARATE [Concomitant]
     Route: 048
     Dates: start: 20101119
  4. ASPIRIN [Concomitant]
     Route: 048
     Dates: start: 20101119
  5. NORVASC [Suspect]
     Route: 048
     Dates: start: 20101201
  6. ARICEPT [Suspect]
     Route: 048
     Dates: start: 20101206, end: 20101206
  7. REMERON [Suspect]
     Route: 048
     Dates: start: 20101119, end: 20101128
  8. ZYPREXA [Suspect]
     Route: 048
     Dates: start: 20101122, end: 20101221
  9. ZYPREXA [Suspect]
     Route: 048
     Dates: start: 20101222, end: 20110105
  10. NEXIUM [Concomitant]
     Route: 048
     Dates: start: 20101119
  11. SPIRIVA [Concomitant]
     Route: 048
     Dates: start: 20101119
  12. ARICEPT [Suspect]
     Route: 048
     Dates: start: 20101223, end: 20101228
  13. REMERON [Suspect]
     Route: 048
     Dates: start: 20101213
  14. ZYPREXA [Suspect]
     Route: 048
     Dates: start: 20101119, end: 20101121
  15. PERINDOPRIL ERBUMINE [Suspect]
     Route: 048
     Dates: start: 20101119
  16. ELTROXIN [Concomitant]
     Route: 048
     Dates: start: 20101119

REACTIONS (1)
  - ALTERED STATE OF CONSCIOUSNESS [None]
